FAERS Safety Report 24962118 (Version 1)
Quarter: 2025Q1

REPORT INFORMATION
  Report Type: Spontaneous
  Country: JP (occurrence: JP)
  Receive Date: 20250212
  Receipt Date: 20250212
  Transmission Date: 20250409
  Serious: Yes (Hospitalization)
  Sender: FERRING
  Company Number: JP-ferring-EVA202500171FERRINGPH

PATIENT

DRUGS (1)
  1. NOCDURNA [Suspect]
     Active Substance: DESMOPRESSIN ACETATE
     Indication: Nocturia
     Dosage: 25 UG, DAILY
     Route: 048

REACTIONS (4)
  - Femur fracture [Recovered/Resolved]
  - Therapeutic response decreased [Unknown]
  - Underdose [Unknown]
  - Product use issue [Unknown]
